FAERS Safety Report 24129836 (Version 1)
Quarter: 2024Q3

REPORT INFORMATION
  Report Type: Spontaneous
  Country: US (occurrence: US)
  Receive Date: 20240724
  Receipt Date: 20240724
  Transmission Date: 20241017
  Serious: No
  Sender: SANOFI AVENTIS
  Company Number: US-SA-SAC20240722001211

PATIENT
  Age: 66 Year
  Sex: Female

DRUGS (2)
  1. REZUROCK [Suspect]
     Active Substance: BELUMOSUDIL
     Indication: Graft versus host disease
     Dosage: 200 MG, QD
     Route: 048
     Dates: start: 20221005
  2. ACYCLOVIR [Suspect]
     Active Substance: ACYCLOVIR
     Dosage: UNK

REACTIONS (3)
  - Joint injury [Unknown]
  - Abdominal pain upper [Unknown]
  - Nausea [Unknown]
